FAERS Safety Report 8433612-9 (Version None)
Quarter: 2012Q2

REPORT INFORMATION
  Report Type: 
  Country: None (occurrence: None)
  Receive Date: 20120613
  Receipt Date: 20120607
  Transmission Date: 20120825
  Serious: Yes (Death, Hospitalization)
  Sender: FDA-Public Use
  Company Number: JP-SANOFI-AVENTIS-2012SA017474

PATIENT
  Age: 75 Year
  Sex: Male
  Weight: 58 kg

DRUGS (7)
  1. BIO THREE [Concomitant]
     Route: 048
     Dates: start: 20110301
  2. DOCETAXEL [Suspect]
     Route: 042
     Dates: start: 20120301, end: 20120301
  3. FLIVASTATIN SODIUM [Concomitant]
     Route: 048
     Dates: start: 20080728
  4. DEXAMETHASONE SODIUM PHOSPHATE [Concomitant]
  5. DEXAMETHASONE [Concomitant]
     Route: 048
     Dates: start: 20110519
  6. DOCETAXEL [Suspect]
     Indication: PROSTATE CANCER
     Route: 042
     Dates: start: 20120216
  7. FAMOTIDINE [Concomitant]
     Route: 048
     Dates: start: 20100308

REACTIONS (6)
  - INTERSTITIAL LUNG DISEASE [None]
  - DYSPNOEA [None]
  - DECREASED APPETITE [None]
  - VOMITING [None]
  - DIARRHOEA [None]
  - RESPIRATORY FAILURE [None]
